FAERS Safety Report 4800129-X (Version None)
Quarter: 2005Q4

REPORT INFORMATION
  Report Type: 
  Country: None (occurrence: None)
  Receive Date: 20051017
  Receipt Date: 20051004
  Transmission Date: 20060501
  Serious: Yes (Other)
  Sender: FDA-Public Use
  Company Number: FR-GLAXOSMITHKLINE-B0396564A

PATIENT
  Age: 49 Year
  Sex: Female

DRUGS (11)
  1. AVANDIA [Suspect]
     Indication: DIABETES MELLITUS NON-INSULIN-DEPENDENT
     Route: 048
     Dates: start: 20050712, end: 20050912
  2. GLUCOPHAGE [Concomitant]
     Indication: DIABETES MELLITUS NON-INSULIN-DEPENDENT
     Dosage: 1000MG THREE TIMES PER DAY
     Route: 048
  3. CELEBREX [Concomitant]
     Indication: PERIARTHRITIS
     Route: 065
  4. PROPOFOL [Concomitant]
     Indication: PERIARTHRITIS
     Route: 065
  5. LAROXYL [Concomitant]
     Indication: PERIARTHRITIS
     Route: 065
  6. NEURONTIN [Concomitant]
     Indication: PERIARTHRITIS
     Route: 065
  7. PARACETAMOL [Concomitant]
     Indication: PERIARTHRITIS
     Route: 065
  8. NON STEROIDAL ANTI-INFLAMMATORY [Concomitant]
     Indication: PERIARTHRITIS
     Route: 065
  9. TRAMADOL [Concomitant]
     Indication: PERIARTHRITIS
     Route: 065
  10. LEVOTHYROX [Concomitant]
     Indication: HYPOTHYROIDISM
     Route: 065
  11. PARIET [Concomitant]
     Indication: OESOPHAGITIS
     Route: 065

REACTIONS (3)
  - ALANINE AMINOTRANSFERASE INCREASED [None]
  - ASPARTATE AMINOTRANSFERASE INCREASED [None]
  - HEPATOCELLULAR DAMAGE [None]
